FAERS Safety Report 10080548 (Version 1)
Quarter: 2014Q2

REPORT INFORMATION
  Report Type: Spontaneous
  Country: US (occurrence: US)
  Receive Date: 20140416
  Receipt Date: 20140416
  Transmission Date: 20141212
  Serious: No
  Sender: FDA-Public Use
  Company Number: US-009507513-1403USA010745

PATIENT
  Age: 36 Year
  Sex: Female

DRUGS (5)
  1. PROVENTIL [Suspect]
     Dosage: TWO PUFFS EVERY FOUR HOURS AS NEED
     Route: 048
     Dates: start: 20140226
  2. ZYMAXID [Concomitant]
  3. DUREZOL [Concomitant]
  4. PREDNISONE [Concomitant]
  5. BENZONATATE [Concomitant]

REACTIONS (4)
  - Wheezing [Unknown]
  - Dyspnoea [Unknown]
  - Cough [Unknown]
  - Product taste abnormal [Unknown]
